FAERS Safety Report 7114026 (Version 9)
Quarter: 2013Q1

REPORT INFORMATION
  Report Type: Spontaneous
  Country: US (occurrence: US)
  Receive Date: 20090914
  Receipt Date: 20130206
  Transmission Date: 20140127
  Serious: Yes (Death, Other)
  Sender: FDA-Public Use
  Company Number: US-JNJFOC-20090901468

PATIENT
  Sex: Male
  Weight: 65.77 kg

DRUGS (8)
  1. REMICADE [Suspect]
     Indication: CROHN^S DISEASE
     Dosage: ON INFLIXIMAB FOR 6 YEARS
     Route: 042
     Dates: start: 2006
  2. HUMIRA [Suspect]
     Indication: CROHN^S DISEASE
     Dates: start: 2008
  3. PREVACID [Concomitant]
  4. FAMOTIDINE [Concomitant]
  5. TYLENOL [Concomitant]
  6. ALLOPURINOL [Concomitant]
  7. LEVOTHYROXINE [Concomitant]
  8. AZATHIOPRINE [Concomitant]
     Indication: CROHN^S DISEASE
     Dates: start: 2006, end: 200810

REACTIONS (1)
  - Hepatosplenic T-cell lymphoma [Fatal]
